FAERS Safety Report 9286335 (Version 1)
Quarter: 2013Q2

REPORT INFORMATION
  Report Type: Spontaneous
  Country: US (occurrence: US)
  Receive Date: 20130513
  Receipt Date: 20130513
  Transmission Date: 20140414
  Serious: Yes (Hospitalization)
  Sender: FDA-Public Use
  Company Number: US-ASTRAZENECA-2013SE31384

PATIENT
  Age: 66 Year
  Sex: Female

DRUGS (2)
  1. BRILINTA [Suspect]
     Indication: ACUTE MYOCARDIAL INFARCTION
     Dosage: LOADING DOSE
     Route: 048
     Dates: start: 201304, end: 201304
  2. BRILINTA [Suspect]
     Indication: ACUTE MYOCARDIAL INFARCTION
     Dosage: ONE MAINTENANCE DOSE
     Route: 048
     Dates: start: 201304, end: 201304

REACTIONS (2)
  - Bronchospasm [Recovering/Resolving]
  - Dyspnoea [Unknown]
